FAERS Safety Report 24302598 (Version 1)
Quarter: 2024Q3

REPORT INFORMATION
  Report Type: Spontaneous
  Country: FR (occurrence: FR)
  Receive Date: 20240910
  Receipt Date: 20240910
  Transmission Date: 20241017
  Serious: Yes (Hospitalization)
  Sender: TEVA
  Company Number: None

PATIENT
  Age: 61 Year
  Sex: Male
  Weight: 76 kg

DRUGS (4)
  1. OXALIPLATIN [Suspect]
     Active Substance: OXALIPLATIN
     Indication: Squamous cell carcinoma of lung
     Dosage: TIME INTERVAL: CYCLICAL
     Route: 042
     Dates: start: 20240730, end: 20240730
  2. OPDIVO [Concomitant]
     Active Substance: NIVOLUMAB
     Indication: Squamous cell carcinoma of lung
     Dosage: TIME INTERVAL: CYCLICAL
     Route: 042
     Dates: start: 20240730, end: 20240730
  3. ONDANSETRON [Concomitant]
     Active Substance: ONDANSETRON
     Indication: Chemotherapy side effect prophylaxis
     Dosage: TIME INTERVAL: CYCLICAL
     Route: 042
     Dates: start: 20240730, end: 20240730
  4. METHYLPREDNISOLONE [Suspect]
     Active Substance: METHYLPREDNISOLONE
     Indication: Chemotherapy side effect prophylaxis
     Dosage: TIME INTERVAL: CYCLICAL
     Route: 042
     Dates: start: 20240730, end: 20240730

REACTIONS (2)
  - Type I hypersensitivity [Recovered/Resolved]
  - Rash [Recovered/Resolved]

NARRATIVE: CASE EVENT DATE: 20240730
